FAERS Safety Report 7126862-5 (Version None)
Quarter: 2010Q4

REPORT INFORMATION
  Report Type: 
  Country: None (occurrence: None)
  Receive Date: 20101129
  Receipt Date: 20091105
  Transmission Date: 20110411
  Serious: No
  Sender: FDA-Public Use
  Company Number: US-PFIZER INC-2009294392

PATIENT
  Sex: Male

DRUGS (6)
  1. VIAGRA [Suspect]
     Indication: ERECTILE DYSFUNCTION
     Dosage: 10 MG, UNK
     Route: 048
  2. METOPROLOL [Concomitant]
     Indication: CARDIAC DISORDER
     Dosage: UNK
     Route: 048
  3. ACETYLSALICYLIC ACID [Concomitant]
     Dosage: UNK
     Route: 048
  4. PRILOSEC [Concomitant]
     Indication: GASTROOESOPHAGEAL REFLUX DISEASE
     Dosage: UNK
     Route: 048
  5. COLCHICINE [Concomitant]
     Indication: GOUT
     Dosage: UNK
     Route: 048
  6. ALLOPURINOL [Concomitant]
     Indication: GOUT
     Dosage: UNK
     Route: 048

REACTIONS (1)
  - PRURITUS [None]
